FAERS Safety Report 6427468-3 (Version None)
Quarter: 2009Q4

REPORT INFORMATION
  Report Type: 
  Country: None (occurrence: None)
  Receive Date: 20091104
  Receipt Date: 20091022
  Transmission Date: 20100525
  Serious: Yes (Other)
  Sender: FDA-Public Use
  Company Number: PHEH2009US14290

PATIENT
  Sex: Male

DRUGS (8)
  1. GLEEVEC [Suspect]
  2. OMEPRAZOLE [Concomitant]
     Dosage: 20 MG, UNK
  3. PRINIVIL [Concomitant]
     Dosage: 20 MG, UNK
  4. GLIPIZIDE [Concomitant]
     Dosage: 7.5 MG, UNK
  5. LOPID [Concomitant]
     Dosage: 600 MG, UNK
  6. COREG [Concomitant]
     Dosage: 12.5 MG, UNK
  7. HYDROCHLOROTHIAZIDE [Concomitant]
     Dosage: 12.5 MG, UNK
  8. GABAPENTIN [Concomitant]
     Dosage: 300 MG, UNK

REACTIONS (3)
  - DYSPHAGIA [None]
  - DYSPNOEA [None]
  - LOCAL SWELLING [None]
